FAERS Safety Report 6647958-8 (Version None)
Quarter: 2010Q1

REPORT INFORMATION
  Report Type: 
  Country: None (occurrence: None)
  Receive Date: 20100324
  Receipt Date: 20100311
  Transmission Date: 20100710
  Serious: Yes (Hospitalization)
  Sender: FDA-Public Use
  Company Number: NL-MEDIMMUNE-MEDI-0010657

PATIENT
  Sex: Male
  Weight: 2.7 kg

DRUGS (2)
  1. SYNAGIS [Suspect]
     Route: 030
     Dates: start: 20100202
  2. FERRO [Concomitant]

REACTIONS (4)
  - APATHY [None]
  - BODY TEMPERATURE DECREASED [None]
  - FLUID INTAKE REDUCED [None]
  - MENINGITIS [None]
